FAERS Safety Report 24918548 (Version 1)
Quarter: 2025Q1

REPORT INFORMATION
  Report Type: Spontaneous
  Country: GB (occurrence: GB)
  Receive Date: 20250203
  Receipt Date: 20250203
  Transmission Date: 20250409
  Serious: Yes (Disabling, Other)
  Sender: PFIZER
  Company Number: GB-PFIZER INC-PV202500012957

PATIENT
  Sex: Female

DRUGS (1)
  1. HYDROCORTISONE SODIUM SUCCINATE [Suspect]
     Active Substance: HYDROCORTISONE SODIUM SUCCINATE
     Indication: Pituitary tumour removal
     Dosage: 30 MG, DAILY
     Dates: start: 1988

REACTIONS (4)
  - Syncope [Recovering/Resolving]
  - Cholecystectomy [Recovering/Resolving]
  - Intervertebral disc protrusion [Recovering/Resolving]
  - Osteoporosis [Recovering/Resolving]
